FAERS Safety Report 17758484 (Version 1)
Quarter: 2020Q2

REPORT INFORMATION
  Report Type: Other
  Country: CH (occurrence: CH)
  Receive Date: 20200507
  Receipt Date: 20200507
  Transmission Date: 20200714
  Serious: Yes (Hospitalization)
  Sender: FDA-Public Use
  Company Number: CH-B.BRAUN MEDICAL INC.-2083602

PATIENT
  Age: 85 Year
  Sex: Female

DRUGS (4)
  1. PHENPROCOUMON [Concomitant]
     Active Substance: PHENPROCOUMON
  2. BISOPROLOL [Concomitant]
     Active Substance: BISOPROLOL
  3. CEFTRIAXONE FOR INJECTION AND DEXTROSE INJECTION 0264-3153-11 (NDA 050 [Suspect]
     Active Substance: CEFTRIAXONE SODIUM
     Route: 042
  4. DILTIAZEM. [Concomitant]
     Active Substance: DILTIAZEM

REACTIONS (2)
  - Panniculitis [Recovered/Resolved]
  - Hypersensitivity vasculitis [Recovered/Resolved]
